FAERS Safety Report 9808973 (Version 1)
Quarter: 2014Q1

REPORT INFORMATION
  Report Type: Report from Study
  Country: CA (occurrence: CA)
  Receive Date: 20140110
  Receipt Date: 20140110
  Transmission Date: 20141002
  Serious: Yes (Other)
  Sender: FDA-Public Use
  Company Number: PHHY2014CA002358

PATIENT
  Sex: Female

DRUGS (4)
  1. ACLASTA [Suspect]
     Indication: OSTEOPOROSIS
     Dosage: UNK
     Route: 042
     Dates: start: 20091123
  2. ACLASTA [Suspect]
     Dosage: UNK
     Route: 042
     Dates: start: 20101202
  3. ACLASTA [Suspect]
     Dosage: UNK
     Route: 042
     Dates: start: 20111202
  4. ACLASTA [Suspect]
     Dosage: UNK
     Route: 042
     Dates: start: 20121218

REACTIONS (1)
  - Lower limb fracture [Unknown]
